FAERS Safety Report 9114922 (Version 1)
Quarter: 2013Q1

REPORT INFORMATION
  Report Type: Spontaneous
  Country: CA (occurrence: None)
  Receive Date: 20130123
  Receipt Date: 20130123
  Transmission Date: 20140127
  Serious: No
  Sender: FDA-Public Use
  Company Number: AECAN201200259

PATIENT
  Sex: 0

DRUGS (1)
  1. ALBUMIN [Suspect]
     Indication: PRODUCT USED FOR UNKNOWN INDICATION
     Route: 061
     Dates: start: 20120423, end: 20120423

REACTIONS (3)
  - Accidental exposure to product [None]
  - Laceration [None]
  - Wound haemorrhage [None]
